FAERS Safety Report 5038794-7 (Version None)
Quarter: 2006Q2

REPORT INFORMATION
  Report Type: 
  Country: None (occurrence: None)
  Receive Date: 20060601
  Receipt Date: 20060104
  Transmission Date: 20061013
  Serious: No
  Sender: FDA-Public Use
  Company Number: 2005PV004033

PATIENT
  Age: 69 Year
  Sex: Male
  Weight: 92.0802 kg

DRUGS (11)
  1. BYETTA [Suspect]
     Indication: DIABETES MELLITUS NON-INSULIN-DEPENDENT
     Dosage: SEE IMAGE
     Route: 058
     Dates: start: 20051015, end: 20051101
  2. BYETTA [Suspect]
     Indication: DIABETES MELLITUS NON-INSULIN-DEPENDENT
     Dosage: SEE IMAGE
     Route: 058
     Dates: start: 20051101
  3. ACTOS /USA/ [Concomitant]
  4. AMARYL [Concomitant]
  5. NORVASC [Concomitant]
  6. LEXAPRO [Concomitant]
  7. COZAAR [Concomitant]
  8. FLOIC ACID [Concomitant]
  9. VYTORIN [Concomitant]
  10. TOPROL-XL [Concomitant]
  11. INDAPAMIDE [Concomitant]

REACTIONS (8)
  - BLOOD GLUCOSE DECREASED [None]
  - HYPERHIDROSIS [None]
  - HYPERTENSION [None]
  - MALAISE [None]
  - NAUSEA [None]
  - PALPITATIONS [None]
  - RETCHING [None]
  - WEIGHT DECREASED [None]
